FAERS Safety Report 9288786 (Version 1)
Quarter: 2013Q2

REPORT INFORMATION
  Report Type: Spontaneous
  Country: US (occurrence: US)
  Receive Date: 20130514
  Receipt Date: 20130514
  Transmission Date: 20140414
  Serious: No
  Sender: FDA-Public Use
  Company Number: US-ASTRAZENECA-2013SE29809

PATIENT
  Sex: Male

DRUGS (6)
  1. CRESTOR [Suspect]
     Route: 048
  2. FLECTOR [Suspect]
     Indication: PAIN
     Route: 065
  3. FLECTOR [Suspect]
     Indication: INFLAMMATION
     Route: 065
  4. VITAMIN D [Suspect]
     Route: 065
  5. MICARDIS [Suspect]
     Route: 065
  6. OTHER MEDICATIONS [Suspect]
     Route: 065

REACTIONS (1)
  - Skin irritation [Unknown]
